FAERS Safety Report 7922644-2 (Version None)
Quarter: 2011Q4

REPORT INFORMATION
  Report Type: 
  Country: None (occurrence: None)
  Receive Date: 20111117
  Receipt Date: 20110705
  Transmission Date: 20120403
  Serious: No
  Sender: FDA-Public Use
  Company Number: US-ALLERGAN-1106057US

PATIENT
  Age: 76 Year
  Sex: Male

DRUGS (2)
  1. COMBIGAN [Suspect]
     Dosage: 1 GTT, BID
     Route: 047
     Dates: start: 20090901, end: 20110424
  2. COMBIGAN [Suspect]
     Indication: GLAUCOMA
     Dosage: 1 GTT, SINGLE
     Route: 047
     Dates: start: 20110425, end: 20110425

REACTIONS (4)
  - DYSPNOEA [None]
  - JOINT SWELLING [None]
  - INTRAOCULAR PRESSURE INCREASED [None]
  - PERIPHERAL COLDNESS [None]
